FAERS Safety Report 9156877 (Version 1)
Quarter: 2013Q1

REPORT INFORMATION
  Report Type: Spontaneous
  Country: US (occurrence: None)
  Receive Date: 20130212
  Receipt Date: 20130212
  Transmission Date: 20140127
  Serious: Yes (Disabling, Other)
  Sender: FDA-Public Use
  Company Number: US-SEPTODONT-201300951

PATIENT
  Sex: Male

DRUGS (1)
  1. SEPTOCAINE [Suspect]
     Indication: LOCAL ANAESTHESIA
     Dosage: NOT NOTED IN COMPLAINT
     Dates: start: 20110119

REACTIONS (12)
  - Pain [None]
  - Blindness unilateral [None]
  - Deafness unilateral [None]
  - Pain in jaw [None]
  - Headache [None]
  - VIIth nerve paralysis [None]
  - Paraesthesia [None]
  - No therapeutic response [None]
  - Feeling hot [None]
  - Vision blurred [None]
  - Hypoaesthesia oral [None]
  - Drug effect prolonged [None]
